FAERS Safety Report 8702293 (Version 2)
Quarter: 2013Q4

REPORT INFORMATION
  Report Type: Spontaneous
  Country: US (occurrence: US)
  Receive Date: 20120803
  Receipt Date: 20131101
  Transmission Date: 20140711
  Serious: No
  Sender: FDA-Public Use
  Company Number: US-009507513-83030158

PATIENT
  Age: 59 Year
  Sex: Female
  Weight: 68.39 kg

DRUGS (3)
  1. CLINORIL [Suspect]
     Indication: ARTHRITIS
     Dosage: 300 MG, BID
     Route: 048
     Dates: start: 19800601, end: 19810620
  2. CLINORIL [Suspect]
     Indication: ARTHRITIS
     Dosage: 300 MG, BID
     Route: 048
     Dates: start: 19811201, end: 19820120
  3. TRICHLORMETHIAZIDE [Concomitant]
     Dosage: 4 MG, UNK
     Dates: start: 197304

REACTIONS (4)
  - Paraesthesia [Recovered/Resolved]
  - Pyrexia [Recovered/Resolved]
  - Dyspepsia [Recovered/Resolved]
  - Vomiting [Recovered/Resolved]
